FAERS Safety Report 13511374 (Version 1)
Quarter: 2017Q2

REPORT INFORMATION
  Report Type: Spontaneous
  Country: US (occurrence: US)
  Receive Date: 20170503
  Receipt Date: 20170503
  Transmission Date: 20170830
  Serious: No
  Sender: FDA-Public Use
  Company Number: None

PATIENT
  Age: 72 Year
  Sex: Male

DRUGS (1)
  1. PROLIA [Suspect]
     Active Substance: DENOSUMAB
     Indication: OSTEOPOROSIS
     Dosage: 60MG EVERY 6 MONTHS SUBQ
     Route: 058
     Dates: start: 20160809

REACTIONS (3)
  - Pain in jaw [None]
  - Device failure [None]
  - Jaw disorder [None]

NARRATIVE: CASE EVENT DATE: 20170501
